FAERS Safety Report 8175316-6 (Version None)
Quarter: 2012Q1

REPORT INFORMATION
  Report Type: 
  Country: None (occurrence: None)
  Receive Date: 20120229
  Receipt Date: 20120222
  Transmission Date: 20120608
  Serious: Yes (Other)
  Sender: FDA-Public Use
  Company Number: PHHY2011CA38892

PATIENT
  Sex: Female

DRUGS (4)
  1. ZOLEDRONOC ACID [Suspect]
     Indication: OSTEOPOROSIS
     Dosage: 5 MG
     Route: 042
     Dates: start: 20100505
  2. CALCIUM [Concomitant]
     Dosage: 1500 MG, UNK
  3. VITAMIN D [Concomitant]
     Dosage: 400 IU, UNK
  4. ZOLEDRONOC ACID [Suspect]
     Dosage: 5 MG
     Route: 042
     Dates: start: 20110504

REACTIONS (3)
  - MOUTH ULCERATION [None]
  - TOOTH FRACTURE [None]
  - INJURY ASSOCIATED WITH DEVICE [None]
